FAERS Safety Report 14450733 (Version 2)
Quarter: 2023Q4

REPORT INFORMATION
  Report Type: Spontaneous
  Country: AT (occurrence: AT)
  Receive Date: 20180129
  Receipt Date: 20231121
  Transmission Date: 20240109
  Serious: Yes (Death)
  Sender: FDA-Public Use
  Company Number: AT-BOEHRINGERINGELHEIM-2018-BI-004636

PATIENT
  Sex: Male

DRUGS (1)
  1. OFEV [Suspect]
     Active Substance: NINTEDANIB
     Indication: Asbestosis
     Route: 065

REACTIONS (2)
  - Death [Fatal]
  - Off label use [Unknown]
